FAERS Safety Report 10238479 (Version 3)
Quarter: 2014Q3

REPORT INFORMATION
  Report Type: Spontaneous
  Country: IT (occurrence: IT)
  Receive Date: 20140616
  Receipt Date: 20140904
  Transmission Date: 20150326
  Serious: Yes (Hospitalization)
  Sender: FDA-Public Use
  Company Number: IT-SA-2014SA073520

PATIENT
  Age: 85 Year
  Sex: Male

DRUGS (14)
  1. LANTUS [Suspect]
     Active Substance: INSULIN GLARGINE
     Indication: DIABETES MELLITUS
     Dosage: DOSE:9 UNIT(S)
     Route: 058
     Dates: start: 20121211, end: 20140530
  2. TAREG [Concomitant]
     Active Substance: VALSARTAN
     Indication: HYPERTENSIVE HEART DISEASE
     Route: 048
  3. LOSEC [Concomitant]
     Active Substance: OMEPRAZOLE
     Dosage: GASTRORESISITANT HARD CAPSULE
     Route: 048
  4. TIKLID [Concomitant]
     Active Substance: TICLOPIDINE HYDROCHLORIDE
     Dosage: MODIFIED RELEASE HARD CAPSULES
     Route: 048
  5. LAROXYL [Concomitant]
     Active Substance: AMITRIPTYLINE
     Route: 048
  6. RANEXA [Concomitant]
     Active Substance: RANOLAZINE
     Dosage: PROLONGED RELEASE TABLET ORAL BLISTER
     Route: 048
  7. TAVOR [Concomitant]
     Active Substance: LORAZEPAM
     Route: 048
  8. OMNIC [Concomitant]
     Active Substance: TAMSULOSIN HYDROCHLORIDE
     Route: 048
  9. SOLOSTAR [Concomitant]
     Active Substance: DEVICE
  10. APIDRA [Suspect]
     Active Substance: INSULIN GLULISINE
     Indication: DIABETES MELLITUS
     Dosage: DOSE:27 UNIT(S)
     Route: 058
     Dates: start: 20121211, end: 20140530
  11. TORVAST [Concomitant]
     Active Substance: ATORVASTATIN
     Route: 048
  12. TENORMIN [Concomitant]
     Active Substance: ATENOLOL
     Indication: HYPERTENSION
     Route: 048
  13. MONOCINQUE [Concomitant]
     Active Substance: ISOSORBIDE MONONITRATE
     Dosage: PROLONGED RELEASE HARD CAPSULE
     Route: 048
  14. SOLOSTAR [Concomitant]
     Active Substance: DEVICE

REACTIONS (2)
  - Chest pain [Recovered/Resolved]
  - Hypoglycaemia [Recovered/Resolved]

NARRATIVE: CASE EVENT DATE: 20130822
